FAERS Safety Report 12778899 (Version 2)
Quarter: 2018Q4

REPORT INFORMATION
  Report Type: Spontaneous
  Country: US (occurrence: US)
  Receive Date: 20160926
  Receipt Date: 20181031
  Transmission Date: 20190204
  Serious: No
  Sender: FDA-Public Use
  Company Number: US-JAZZ-2016-US-011010

PATIENT
  Sex: Female

DRUGS (33)
  1. XYREM [Suspect]
     Active Substance: SODIUM OXYBATE
     Indication: FIBROMYALGIA
     Dosage: 2.25 G, BID
     Route: 048
     Dates: start: 200310, end: 200311
  2. CURCUMIN [Concomitant]
     Active Substance: CURCUMIN
  3. DIFLUCAN [Concomitant]
     Active Substance: FLUCONAZOLE
  4. METHADONE HCL [Concomitant]
     Active Substance: METHADONE HYDROCHLORIDE
  5. VALTREX [Concomitant]
     Active Substance: VALACYCLOVIR HYDROCHLORIDE
  6. VITAMIN B12 [Concomitant]
     Active Substance: CYANOCOBALAMIN
  7. XYREM [Suspect]
     Active Substance: SODIUM OXYBATE
     Dosage: DOSE ADJUSTMENTS
     Route: 048
     Dates: start: 200311, end: 200804
  8. SALBUTAMOL [Concomitant]
     Active Substance: ALBUTEROL
  9. ZESTRIL [Concomitant]
     Active Substance: LISINOPRIL
  10. XYREM [Suspect]
     Active Substance: SODIUM OXYBATE
     Dosage: 5 G, SECOND DOSE
     Route: 048
     Dates: start: 200811, end: 201006
  11. XYREM [Suspect]
     Active Substance: SODIUM OXYBATE
     Dosage: 4.5 G, BID
     Route: 048
     Dates: start: 201108
  12. IBUPROFEN. [Concomitant]
     Active Substance: IBUPROFEN
  13. ASCORBIC ACID. [Concomitant]
     Active Substance: ASCORBIC ACID
  14. XYREM [Suspect]
     Active Substance: SODIUM OXYBATE
     Dosage: 5 G, SECOND DOSE
     Route: 048
     Dates: start: 200804, end: 2008
  15. XYREM [Suspect]
     Active Substance: SODIUM OXYBATE
     Dosage: DOSE ADJUSTMENTS
     Route: 048
     Dates: start: 201006, end: 201108
  16. CARDIZEM CD [Concomitant]
     Active Substance: DILTIAZEM HYDROCHLORIDE
  17. HYDROCORTISONE CIPIONATE [Concomitant]
     Active Substance: HYDROCORTISONE CYPIONATE
  18. CLONIDINE HCL [Concomitant]
     Active Substance: CLONIDINE HYDROCHLORIDE
  19. CLOTRIMAZOLE. [Concomitant]
     Active Substance: CLOTRIMAZOLE
  20. TAMSULOSIN HYDROCHLORIDE. [Concomitant]
     Active Substance: TAMSULOSIN HYDROCHLORIDE
  21. DRONABINOL. [Concomitant]
     Active Substance: DRONABINOL
  22. OMEPRAZOLE. [Concomitant]
     Active Substance: OMEPRAZOLE
  23. SORBITOL. [Concomitant]
     Active Substance: SORBITOL
  24. XYREM [Suspect]
     Active Substance: SODIUM OXYBATE
     Dosage: 9 G, FIRST DOSE
     Route: 048
     Dates: start: 200804, end: 2008
  25. ALPHA LIPOIC ACID [Concomitant]
     Active Substance: .ALPHA.-LIPOIC ACID
  26. DENAVIR [Concomitant]
     Active Substance: PENCICLOVIR
  27. FLUTICASONE PROPIONATE. [Concomitant]
     Active Substance: FLUTICASONE PROPIONATE
  28. AXIRON [Concomitant]
     Active Substance: TESTOSTERONE
  29. LORATADINE. [Concomitant]
     Active Substance: LORATADINE
  30. CLINDAMYCIN PHOSPHATE. [Concomitant]
     Active Substance: CLINDAMYCIN PHOSPHATE
  31. XYREM [Suspect]
     Active Substance: SODIUM OXYBATE
     Dosage: 9 G, FIRST DOSE
     Route: 048
     Dates: start: 200811, end: 201006
  32. EPIPEN [Concomitant]
     Active Substance: EPINEPHRINE
  33. GLUTATHIONE [Concomitant]
     Active Substance: GLUTATHIONE

REACTIONS (2)
  - Tremor [Not Recovered/Not Resolved]
  - Unevaluable event [Not Recovered/Not Resolved]
